FAERS Safety Report 9775040 (Version 1)
Quarter: 2013Q4

REPORT INFORMATION
  Report Type: Spontaneous
  Country: US (occurrence: US)
  Receive Date: 20131220
  Receipt Date: 20131220
  Transmission Date: 20140711
  Serious: No
  Sender: FDA-Public Use
  Company Number: US-GLAXOSMITHKLINE-A1042459A

PATIENT
  Age: 73 Year
  Sex: Male

DRUGS (3)
  1. AVODART [Suspect]
     Route: 048
     Dates: end: 20130701
  2. INSULIN [Concomitant]
  3. LOSARTAN [Concomitant]

REACTIONS (2)
  - Erectile dysfunction [Not Recovered/Not Resolved]
  - Loss of libido [Unknown]
